FAERS Safety Report 9084884 (Version 1)
Quarter: 2013Q1

REPORT INFORMATION
  Report Type: Report from Study
  Country: US (occurrence: US)
  Receive Date: 20130131
  Receipt Date: 20130131
  Transmission Date: 20140127
  Serious: No
  Sender: FDA-Public Use
  Company Number: US-ABBOTT-12P-163-0993105-00

PATIENT
  Sex: Male
  Weight: 99.88 kg

DRUGS (3)
  1. HUMIRA [Suspect]
     Indication: PSORIATIC ARTHROPATHY
     Dosage: WEEKLY
     Dates: start: 200911, end: 201206
  2. UNNAMED HIGH BLOOD PRESSURE MEDICINE (NON-ABBOTT) [Concomitant]
     Indication: HYPERTENSION
  3. TERAZOSIN (NON-ABBOTT) [Concomitant]
     Indication: PROSTATOMEGALY

REACTIONS (4)
  - Emotional distress [Not Recovered/Not Resolved]
  - Psoriasis [Not Recovered/Not Resolved]
  - Psoriasis [Not Recovered/Not Resolved]
  - Psoriasis [Not Recovered/Not Resolved]
